FAERS Safety Report 9301444 (Version 4)
Quarter: 2013Q3

REPORT INFORMATION
  Report Type: Spontaneous
  Country: US (occurrence: US)
  Receive Date: 20130521
  Receipt Date: 20130819
  Transmission Date: 20140515
  Serious: No
  Sender: FDA-Public Use
  Company Number: US-PFIZER INC-2013152033

PATIENT
  Age: 86 Year
  Sex: Female
  Weight: 66.67 kg

DRUGS (9)
  1. SUTENT [Suspect]
     Dosage: 50 MG, CYCLIC
     Dates: start: 20130429
  2. METHOTREXATE [Concomitant]
     Indication: RHEUMATOID ARTHRITIS
     Dosage: UNK
  3. PREDNISONE [Concomitant]
     Dosage: UNK
  4. METFORMIN [Concomitant]
     Dosage: UNK
  5. VOLTAREN [Concomitant]
     Dosage: UNK
  6. ZOFRAN [Concomitant]
     Dosage: UNK
  7. METRONIDAZOLE [Concomitant]
     Indication: ANTIBIOTIC PROPHYLAXIS
     Dosage: UNK
  8. FLAGYL [Concomitant]
     Indication: ANTIBIOTIC PROPHYLAXIS
     Dosage: UNK
  9. LASIX [Concomitant]
     Dosage: UNK

REACTIONS (13)
  - Diarrhoea [Recovering/Resolving]
  - Gastrointestinal sounds abnormal [Unknown]
  - Stomatitis [Recovered/Resolved]
  - Headache [Unknown]
  - Local swelling [Unknown]
  - Dyspnoea exertional [Unknown]
  - Flatulence [Unknown]
  - Joint swelling [Unknown]
  - Pain in extremity [Unknown]
  - Erythema [Unknown]
  - Fatigue [Unknown]
  - Asthenia [Unknown]
  - Rash macular [Unknown]
